FAERS Safety Report 14126182 (Version 1)
Quarter: 2017Q4

REPORT INFORMATION
  Report Type: Spontaneous
  Country: US (occurrence: US)
  Receive Date: 20171025
  Receipt Date: 20171025
  Transmission Date: 20180321
  Serious: No
  Sender: FDA-Public Use
  Company Number: US-BAYER-2017-204804

PATIENT
  Age: 34 Year
  Sex: Female

DRUGS (2)
  1. QLAIRA [Suspect]
     Active Substance: DIENOGEST\ESTRADIOL VALERATE
     Indication: PREMENSTRUAL SYNDROME
  2. QLAIRA [Suspect]
     Active Substance: DIENOGEST\ESTRADIOL VALERATE
     Indication: CONTRACEPTION
     Dosage: UNK
     Route: 048
     Dates: start: 201706

REACTIONS (2)
  - Drug dose omission [None]
  - Abnormal withdrawal bleeding [Not Recovered/Not Resolved]

NARRATIVE: CASE EVENT DATE: 2017
